FAERS Safety Report 12307604 (Version 1)
Quarter: 2016Q2

REPORT INFORMATION
  Report Type: Spontaneous
  Country: US (occurrence: US)
  Receive Date: 20160426
  Receipt Date: 20160426
  Transmission Date: 20160815
  Serious: No
  Sender: FDA-Public Use
  Company Number: US-ALKERMES INC.-ALK-2015-000897

PATIENT

DRUGS (3)
  1. NAPROXEN. [Concomitant]
     Active Substance: NAPROXEN
     Indication: FOOD POISONING
  2. VIVITROL [Suspect]
     Active Substance: NALTREXONE
     Indication: DRUG DEPENDENCE
     Dosage: 380 MG, QMO
     Route: 030
     Dates: start: 20150828
  3. NAPROXEN. [Concomitant]
     Active Substance: NAPROXEN
     Indication: OCCIPITAL NEURALGIA
     Dosage: UNK
     Dates: start: 201508

REACTIONS (7)
  - Headache [Unknown]
  - Contusion [Unknown]
  - Pain in extremity [Unknown]
  - Insomnia [Unknown]
  - Injection site pain [Recovering/Resolving]
  - Injection site reaction [Recovering/Resolving]
  - Injection site bruising [Recovering/Resolving]

NARRATIVE: CASE EVENT DATE: 2015
